FAERS Safety Report 22925347 (Version 2)
Quarter: 2023Q4

REPORT INFORMATION
  Report Type: Spontaneous
  Country: US (occurrence: US)
  Receive Date: 20230908
  Receipt Date: 20231006
  Transmission Date: 20240110
  Serious: No
  Sender: FDA-Public Use
  Company Number: US-MYLANLABS-2023M1092763

PATIENT
  Sex: Female
  Weight: 54.43 kg

DRUGS (1)
  1. FENTANYL TRANSDERMAL SYSTEM [Suspect]
     Active Substance: FENTANYL
     Indication: Pain
     Dosage: 50 MICROGRAM, QH
     Route: 062
     Dates: start: 20230823

REACTIONS (9)
  - Withdrawal syndrome [Unknown]
  - Diarrhoea [Unknown]
  - Tremor [Unknown]
  - Palpitations [Unknown]
  - Product adhesion issue [Unknown]
  - Drug delivery system issue [Unknown]
  - Product size issue [Unknown]
  - Wrong technique in product usage process [Unknown]
  - Product appearance confusion [Unknown]
